FAERS Safety Report 4637905-2 (Version None)
Quarter: 2005Q2

REPORT INFORMATION
  Report Type: 
  Country: None (occurrence: None)
  Receive Date: 20050418
  Receipt Date: 20050118
  Transmission Date: 20051028
  Serious: Yes (Hospitalization)
  Sender: FDA-Public Use
  Company Number: US-ROCHE-392678

PATIENT
  Age: 2 Year
  Sex: Female
  Weight: 16.4 kg

DRUGS (35)
  1. DACLIZUMAB [Suspect]
     Route: 065
     Dates: start: 20040628, end: 20040628
  2. DACLIZUMAB [Suspect]
     Route: 065
     Dates: start: 20040630, end: 20040825
  3. TACROLIMUS [Suspect]
     Route: 065
  4. TACROLIMUS [Suspect]
     Route: 065
  5. PREDNISONE [Suspect]
     Route: 065
  6. PREDNISONE [Suspect]
     Route: 065
  7. PREDNISOLONE [Suspect]
     Route: 065
  8. AZATHIOPRINE [Suspect]
     Route: 065
  9. SIROLIMUS [Suspect]
     Route: 065
  10. PRILOSEC [Concomitant]
  11. ASPIRIN [Concomitant]
  12. LOMOTIL [Concomitant]
     Dosage: DOSE ALSO REPORTED AS '1.5/5 BID'.
  13. FER-IN-SOL [Concomitant]
  14. PEPCID [Concomitant]
  15. REGLAN [Concomitant]
  16. LACTOBACILLUS [Concomitant]
  17. FLORINEF [Concomitant]
  18. EPOGEN [Concomitant]
  19. IRON NOS [Concomitant]
     Dosage: REPORTED AS ^NEW IRON^
  20. GANCICLOVIR [Concomitant]
     Route: 042
  21. FAMOTIDINE [Concomitant]
     Route: 050
  22. SEPTRA [Concomitant]
     Dosage: GIVEN AT NIGHT. DOSE ALSO REPORTED AS '200-200/5 ML, QD'.
     Route: 050
  23. FERROUS SULFATE TAB [Concomitant]
  24. LASIX [Concomitant]
  25. MAG PLUS [Concomitant]
  26. ALBUTEROL [Concomitant]
  27. FLOVENT [Concomitant]
     Dosage: 1 PUFF = 44 MCG.
  28. EPOGEN [Concomitant]
     Route: 058
  29. NORVASC [Concomitant]
  30. BACTRIM [Concomitant]
  31. NIFEREX [Concomitant]
     Dosage: DOSE ALSO REPORTED AS '100MG/5ML BID'.
  32. SODIUM BICARBONATE [Concomitant]
  33. SODIUM CHLORIDE [Concomitant]
     Dosage: DOSE REPORTED AS 1MEQ/ML QD.
  34. VALCYTE [Concomitant]
  35. 1 CONCOMITANT DRUG [Concomitant]
     Dosage: DRUG REPORTED AS 'FOOGERCORT'.

REACTIONS (19)
  - ATELECTASIS [None]
  - BACTERIAL INFECTION [None]
  - BACTERIAL TEST POSITIVE [None]
  - BLOOD CREATININE INCREASED [None]
  - CATHETER RELATED INFECTION [None]
  - CYTOMEGALOVIRUS INFECTION [None]
  - DEHYDRATION [None]
  - ELECTROLYTE IMBALANCE [None]
  - ENTEROCOCCAL INFECTION [None]
  - HEART RATE INCREASED [None]
  - LEUKOPENIA [None]
  - LIVER FUNCTION TEST ABNORMAL [None]
  - PNEUMONIA [None]
  - RASH [None]
  - SLEEP DISORDER [None]
  - STAPHYLOCOCCAL INFECTION [None]
  - UPPER RESPIRATORY TRACT INFECTION [None]
  - URINARY TRACT INFECTION [None]
  - URINE OUTPUT DECREASED [None]
